FAERS Safety Report 4299806-1 (Version None)
Quarter: 2004Q1

REPORT INFORMATION
  Report Type: 
  Country: None (occurrence: None)
  Receive Date: 20040219
  Receipt Date: 20040206
  Transmission Date: 20041129
  Serious: Yes (Death, Hospitalization)
  Sender: FDA-Public Use
  Company Number: WAES 0402ZAF00009

PATIENT
  Age: 34 Year
  Sex: Female

DRUGS (4)
  1. CEPHALEXIN [Concomitant]
     Route: 042
     Dates: start: 20040129
  2. INDOCIN [Suspect]
     Indication: UTERINE CONTRACTIONS DURING PREGNANCY
     Route: 054
     Dates: start: 20040129, end: 20040209
  3. METRONIDAZOLE [Concomitant]
     Route: 041
     Dates: start: 20040129
  4. NIFEDIPINE [Concomitant]
     Route: 048
     Dates: start: 20020929, end: 20040209

REACTIONS (4)
  - ABORTION SPONTANEOUS [None]
  - COMPLICATIONS OF MATERNAL EXPOSURE TO THERAPEUTIC DRUGS [None]
  - DRUG EXPOSURE DURING PREGNANCY [None]
  - PREMATURE SEPARATION OF PLACENTA [None]
